FAERS Safety Report 21383010 (Version 1)
Quarter: 2022Q3

REPORT INFORMATION
  Report Type: Spontaneous
  Country: US (occurrence: US)
  Receive Date: 20220927
  Receipt Date: 20220927
  Transmission Date: 20221027
  Serious: No
  Sender: FDA-Public Use
  Company Number: US-SA-SAC20220921000645

PATIENT
  Sex: Male

DRUGS (4)
  1. FABRAZYME [Suspect]
     Active Substance: AGALSIDASE BETA
     Indication: Fabry^s disease
     Route: 065
  2. TYLENOL [Concomitant]
     Active Substance: ACETAMINOPHEN
     Indication: Infusion related reaction
  3. PREDNISONE [Concomitant]
     Active Substance: PREDNISONE
     Indication: Infusion related reaction
  4. CLARITIN [Concomitant]
     Active Substance: LORATADINE
     Indication: Infusion related reaction

REACTIONS (2)
  - Cardiac disorder [Unknown]
  - Chills [Unknown]
